FAERS Safety Report 20502484 (Version 2)
Quarter: 2024Q4

REPORT INFORMATION
  Report Type: Report from Study
  Country: CA (occurrence: CA)
  Receive Date: 20220222
  Receipt Date: 20241024
  Transmission Date: 20250115
  Serious: Yes (Other)
  Sender: NOVARTIS
  Company Number: CA-NOVARTISPH-NVSC2022CA038976

PATIENT
  Age: 50 Year
  Sex: Male

DRUGS (1)
  1. DEFERASIROX [Suspect]
     Active Substance: DEFERASIROX
     Indication: Product used for unknown indication
     Dosage: 720 MG, QD (2X360 MG, FREQUENCY UNKNOWN)
     Route: 065
     Dates: start: 20220607

REACTIONS (2)
  - Renal impairment [Unknown]
  - Product substitution issue [Unknown]
